FAERS Safety Report 8583484-7 (Version None)
Quarter: 2012Q3

REPORT INFORMATION
  Report Type: 
  Country: None (occurrence: None)
  Receive Date: 20120809
  Receipt Date: 20120806
  Transmission Date: 20120928
  Serious: Yes (Other)
  Sender: FDA-Public Use
  Company Number: US-BAYER-2012-072998

PATIENT
  Sex: Female
  Weight: 96.145 kg

DRUGS (4)
  1. BACLOFEN [Concomitant]
     Indication: MUSCLE SPASTICITY
     Dosage: 20 MG, UNK
  2. BETASERON [Suspect]
     Indication: MULTIPLE SCLEROSIS
     Dosage: 0.25 MG, QOD
     Route: 058
  3. FENTANYL [Concomitant]
     Indication: PAIN MANAGEMENT
     Dosage: 50 MCG/HR, Q72HR
  4. GABAPENTIN [Concomitant]
     Indication: PAIN MANAGEMENT
     Dosage: 300 MG, TID

REACTIONS (1)
  - ATRIAL FIBRILLATION [None]
